FAERS Safety Report 10014393 (Version 1)
Quarter: 2014Q1

REPORT INFORMATION
  Report Type: Spontaneous
  Country: US (occurrence: US)
  Receive Date: 20140317
  Receipt Date: 20140317
  Transmission Date: 20141002
  Serious: No
  Sender: FDA-Public Use
  Company Number: US-009507513-1403USA006962

PATIENT
  Sex: Female
  Weight: 131.52 kg

DRUGS (3)
  1. IMPLANON [Suspect]
     Indication: CONTRACEPTION
     Dosage: ONE ROD/THREE YEARS, IN ARM
     Route: 059
     Dates: start: 2010
  2. TRAZODONE HYDROCHLORIDE [Concomitant]
  3. VALIUM [Concomitant]

REACTIONS (2)
  - Uterine haemorrhage [Not Recovered/Not Resolved]
  - Incorrect drug administration duration [Unknown]
